FAERS Safety Report 8737963 (Version 6)
Quarter: 2012Q4

REPORT INFORMATION
  Report Type: 
  Country: IT (occurrence: IT)
  Receive Date: 20120823
  Receipt Date: 20121003
  Transmission Date: 20130627
  Serious: Yes (Hospitalization)
  Sender: FDA-Public Use
  Company Number: IT-BRISTOL-MYERS SQUIBB COMPANY-16856403

PATIENT
  Age: 65 Year
  Sex: Male

DRUGS (5)
  1. COUMADIN TABS 5 MG [Suspect]
     Indication: FACTOR V LEIDEN MUTATION
     Dosage: 1df= 1dose
     Route: 048
     Dates: start: 20080101, end: 20120720
  2. IBUPROFEN [Suspect]
     Indication: BACK PAIN
     Route: 048
     Dates: start: 20120721, end: 20120728
  3. BUSCOPAN [Suspect]
     Indication: ABDOMINAL PAIN
     Dosage: Buscopan 20 mg/ml. 1df=1 dose
     Route: 030
     Dates: start: 20120721, end: 20120728
  4. ALLOPURINOL [Concomitant]
     Indication: HYPERURICAEMIA
  5. PENTACOL [Concomitant]
     Indication: INFLAMMATORY BOWEL DISEASE
     Dosage: tabs

REACTIONS (5)
  - Anaemia [Recovering/Resolving]
  - Haematuria [Recovering/Resolving]
  - Rectal haemorrhage [Recovering/Resolving]
  - Duodenal ulcer [Recovering/Resolving]
  - Renal failure acute [Recovering/Resolving]
